FAERS Safety Report 16644645 (Version 2)
Quarter: 2019Q3

REPORT INFORMATION
  Report Type: Spontaneous
  Country: US (occurrence: US)
  Receive Date: 20190729
  Receipt Date: 20190806
  Transmission Date: 20191004
  Serious: Yes (Other)
  Sender: FDA-Public Use
  Company Number: US-SA-2019SA199059

PATIENT
  Age: 54 Year
  Sex: Female

DRUGS (1)
  1. KEVZARA [Suspect]
     Active Substance: SARILUMAB
     Indication: PRODUCT USED FOR UNKNOWN INDICATION
     Dosage: 200 MG/1.14, QOW
     Route: 058
     Dates: start: 201904

REACTIONS (2)
  - Hepatic enzyme increased [Unknown]
  - Respiratory tract infection [Unknown]
